FAERS Safety Report 20125904 (Version 1)
Quarter: 2021Q4

REPORT INFORMATION
  Report Type: Spontaneous
  Country: US (occurrence: US)
  Receive Date: 20211129
  Receipt Date: 20211129
  Transmission Date: 20220303
  Serious: Yes (Other)
  Sender: FDA-Public Use
  Company Number: US-MYLANLABS-2021M1087503

PATIENT
  Age: 64 Year
  Sex: Male

DRUGS (7)
  1. KETOCONAZOLE [Suspect]
     Active Substance: KETOCONAZOLE
     Indication: Benign familial pemphigus
     Dosage: UNK, PHARMACEUTICAL FORM: CREAM
     Route: 061
  2. TACROLIMUS [Suspect]
     Active Substance: TACROLIMUS
     Indication: Benign familial pemphigus
     Dosage: UNK, OINTMENT
     Route: 065
  3. DESONIDE [Suspect]
     Active Substance: DESONIDE
     Indication: Benign familial pemphigus
     Dosage: UNK
     Route: 065
  4. GLYCOPYRRONIUM [Suspect]
     Active Substance: GLYCOPYRRONIUM
     Indication: Benign familial pemphigus
     Dosage: UNK
     Route: 048
  5. CYCLOSPORINE [Suspect]
     Active Substance: CYCLOSPORINE
     Indication: Benign familial pemphigus
     Dosage: UNK
     Route: 061
  6. ALUMINUM CHLORIDE [Suspect]
     Active Substance: ALUMINUM CHLORIDE
     Indication: Benign familial pemphigus
     Dosage: UNK
     Route: 065
  7. CALCIPOTRIENE [Suspect]
     Active Substance: CALCIPOTRIENE
     Indication: Benign familial pemphigus
     Dosage: UNK
     Route: 065

REACTIONS (2)
  - Drug ineffective for unapproved indication [Unknown]
  - Off label use [Unknown]
